FAERS Safety Report 4619394-7 (Version None)
Quarter: 2005Q2

REPORT INFORMATION
  Report Type: 
  Country: None (occurrence: None)
  Receive Date: 20050321
  Receipt Date: 20040401
  Transmission Date: 20051028
  Serious: Yes (Other)
  Sender: FDA-Public Use
  Company Number: 2004-04-0114

PATIENT
  Age: 46 Year
  Sex: Male
  Weight: 95.2554 kg

DRUGS (10)
  1. PEG-INTRON (PEGINTERFERON ALFA-2B) INJECTABLE POWDER [Suspect]
     Indication: HEPATITIS C
     Dosage: 150 MCG QW, SUBCUTANEOUS
     Route: 058
     Dates: start: 20040319, end: 20040326
  2. REBETOL [Suspect]
     Indication: HEPATITIS C
     Dosage: 600 MG BID, ORAL
     Route: 048
     Dates: start: 20040319, end: 20040330
  3. GARLIC [Concomitant]
  4. PREVACID [Concomitant]
  5. GINSENG [Concomitant]
  6. ACIDOPHILOUS [Concomitant]
  7. SERENOA REPENS [Concomitant]
  8. COD LIVER OIL CONCENTRATE [Concomitant]
  9. FLAXSEED OIL [Concomitant]
  10. EPDANTOIN [Concomitant]

REACTIONS (4)
  - CHROMATURIA [None]
  - FATIGUE [None]
  - HAEMOLYTIC ANAEMIA [None]
  - JAUNDICE [None]
